FAERS Safety Report 7829792-6 (Version None)
Quarter: 2011Q4

REPORT INFORMATION
  Report Type: 
  Country: None (occurrence: None)
  Receive Date: 20111020
  Receipt Date: 20111020
  Transmission Date: 20120403
  Serious: No
  Sender: FDA-Public Use
  Company Number: None

PATIENT
  Sex: Female
  Weight: 83.4619 kg

DRUGS (1)
  1. SPRING VALLEY C+E 500MG, 400 IU [Suspect]
     Indication: IMMUNE SYSTEM DISORDER
     Dosage: 1 CAPSULE DAILY
     Dates: start: 20100501, end: 20110601

REACTIONS (5)
  - EAR INFECTION [None]
  - NERVOUS SYSTEM DISORDER [None]
  - EAR PAIN [None]
  - MALAISE [None]
  - INFLUENZA LIKE ILLNESS [None]
